FAERS Safety Report 24602981 (Version 1)
Quarter: 2024Q4

REPORT INFORMATION
  Report Type: Other
  Country: CA (occurrence: CA)
  Receive Date: 20241111
  Receipt Date: 20241111
  Transmission Date: 20250114
  Serious: Yes (Hospitalization, Other)
  Sender: PFIZER
  Company Number: CA-PFIZER INC-202400294857

PATIENT
  Age: 34 Year
  Sex: Male

DRUGS (9)
  1. LORAZEPAM [Suspect]
     Active Substance: LORAZEPAM
     Dosage: UNK
  2. ACETAMINOPHEN [Suspect]
     Active Substance: ACETAMINOPHEN
     Dosage: UNK
  3. CLONAZEPAM [Suspect]
     Active Substance: CLONAZEPAM
     Dosage: 1.75 MG, 2X/DAY
  4. COCAINE [Suspect]
     Active Substance: COCAINE
     Dosage: UNK
  5. DIPHENHYDRAMINE [Suspect]
     Active Substance: DIPHENHYDRAMINE
     Dosage: UNK
  6. GABAPENTIN [Suspect]
     Active Substance: GABAPENTIN
     Route: 065
  7. METHADONE [Suspect]
     Active Substance: METHADONE HYDROCHLORIDE
     Dosage: 97 MG, 1X/DAY
  8. OLANZAPINE [Suspect]
     Active Substance: OLANZAPINE
     Dosage: UNK
  9. RISPERIDONE [Suspect]
     Active Substance: RISPERIDONE
     Dosage: 1.5 MG

REACTIONS (4)
  - Drug abuse [Unknown]
  - Drug use disorder [Unknown]
  - Psychotic disorder [Unknown]
  - Culture urine positive [Unknown]
